FAERS Safety Report 25675358 (Version 1)
Quarter: 2025Q3

REPORT INFORMATION
  Report Type: Spontaneous
  Country: US (occurrence: None)
  Receive Date: 20250812
  Receipt Date: 20250812
  Transmission Date: 20251020
  Serious: Yes (Hospitalization)
  Sender: FDA-CTU
  Company Number: None

PATIENT
  Sex: Female

DRUGS (6)
  1. TADALAFIL [Suspect]
     Active Substance: TADALAFIL
     Indication: Pulmonary arterial hypertension
     Dosage: FREQUENCY : DAILY;?
     Route: 048
     Dates: start: 20210309
  2. AMBRISENTAN [Concomitant]
     Active Substance: AMBRISENTAN
  3. ATORVASTATIN TAB 10MG [Concomitant]
  4. DILTIAZEM CAP 120MG ER [Concomitant]
  5. ENALAPRIL TAB 2.5MG [Concomitant]
  6. HYDRALAZINE TAB 10MG [Concomitant]

REACTIONS (1)
  - Fluid retention [None]
